FAERS Safety Report 7868287-0 (Version None)
Quarter: 2011Q4

REPORT INFORMATION
  Report Type: 
  Country: None (occurrence: None)
  Receive Date: 20111028
  Receipt Date: 20101217
  Transmission Date: 20120403
  Serious: No
  Sender: FDA-Public Use
  Company Number: US-AMGEN-USASP2010008392

PATIENT
  Age: 16 Year
  Sex: Female
  Weight: 59 kg

DRUGS (3)
  1. NAPROSYN [Concomitant]
     Dosage: UNK
     Dates: end: 20101202
  2. ENBREL [Suspect]
     Indication: JUVENILE ARTHRITIS
     Dosage: 50 MG, QWK
     Route: 058
     Dates: start: 20101124
  3. PREDNISONE [Concomitant]
     Dosage: UNK

REACTIONS (7)
  - ADVERSE REACTION [None]
  - RASH [None]
  - CONTUSION [None]
  - TREATMENT NONCOMPLIANCE [None]
  - SKIN DISCOLOURATION [None]
  - ERYTHEMA [None]
  - URTICARIA [None]
